FAERS Safety Report 7223930-4 (Version None)
Quarter: 2011Q1

REPORT INFORMATION
  Report Type: 
  Country: None (occurrence: None)
  Receive Date: 20110113
  Receipt Date: 20110104
  Transmission Date: 20110831
  Serious: No
  Sender: FDA-Public Use
  Company Number: US-BIOGENIDEC-2010BI036775

PATIENT
  Age: 52 Year
  Sex: Male

DRUGS (1)
  1. TYSABRI [Suspect]
     Indication: MULTIPLE SCLEROSIS
     Route: 042
     Dates: start: 20091014

REACTIONS (12)
  - FEELING COLD [None]
  - CHILLS [None]
  - DRUG HYPERSENSITIVITY [None]
  - LYME DISEASE [None]
  - PAIN IN EXTREMITY [None]
  - LOCAL SWELLING [None]
  - CLAUSTROPHOBIA [None]
  - INFLAMMATION [None]
  - DYSPNOEA [None]
  - BORRELIA TEST POSITIVE [None]
  - CHEST DISCOMFORT [None]
  - HEADACHE [None]
